FAERS Safety Report 6971560-1 (Version None)
Quarter: 2010Q3

REPORT INFORMATION
  Report Type: 
  Country: None (occurrence: None)
  Receive Date: 20100908
  Receipt Date: 20100727
  Transmission Date: 20110219
  Serious: Yes (Other)
  Sender: FDA-Public Use
  Company Number: US-BAXTER-2010BH005199

PATIENT
  Age: 14 Month
  Sex: Female
  Weight: 13 kg

DRUGS (49)
  1. HEPARIN SODIUM INJECTION [Suspect]
     Indication: CATHETERISATION CARDIAC
     Route: 042
     Dates: start: 20070306, end: 20070306
  2. HEPARIN SODIUM INJECTION [Suspect]
     Indication: CARDIAC OPERATION
     Route: 042
     Dates: start: 20070306, end: 20070306
  3. HEPARIN SODIUM INJECTION [Suspect]
     Route: 042
     Dates: start: 20070306, end: 20070306
  4. HEPARIN SODIUM INJECTION [Suspect]
     Route: 042
     Dates: start: 20070306, end: 20070306
  5. HEPARIN SODIUM INJECTION [Suspect]
     Route: 040
     Dates: start: 20070308, end: 20070308
  6. HEPARIN SODIUM INJECTION [Suspect]
     Route: 040
     Dates: start: 20070308, end: 20070308
  7. HEPARIN SODIUM INJECTION [Suspect]
     Dosage: DOSE UNIT:UNITS PER KILOGRAM
     Route: 042
     Dates: start: 20070308, end: 20070324
  8. HEPARIN SODIUM INJECTION [Suspect]
     Dosage: DOSE UNIT:UNITS PER KILOGRAM
     Route: 042
     Dates: start: 20070308, end: 20070324
  9. HEPARIN SODIUM INJECTION [Suspect]
     Route: 042
     Dates: start: 20070315, end: 20070315
  10. HEPARIN SODIUM INJECTION [Suspect]
     Route: 042
     Dates: start: 20070315, end: 20070315
  11. HEPARIN SODIUM INJECTION [Suspect]
     Route: 042
     Dates: start: 20070318, end: 20070318
  12. HEPARIN SODIUM INJECTION [Suspect]
     Route: 042
     Dates: start: 20070318, end: 20070318
  13. HEPARIN SODIUM INJECTION [Suspect]
     Indication: CENTRAL VENOUS CATHETERISATION
     Route: 042
     Dates: start: 20070307, end: 20070403
  14. POLY-VI-SOL                             /USA/ [Concomitant]
     Indication: PRODUCT USED FOR UNKNOWN INDICATION
     Route: 065
  15. KEFLEX [Concomitant]
     Indication: URINARY TRACT INFECTION
     Route: 065
  16. LACTATED RINGER'S [Concomitant]
     Indication: PRODUCT USED FOR UNKNOWN INDICATION
     Route: 065
  17. SODIUM CHLORIDE 0.9% IN PLASTIC CONTAINER [Concomitant]
     Indication: PRODUCT USED FOR UNKNOWN INDICATION
     Route: 065
  18. SODIUM NITROPRUSSIDE (TEVA) [Concomitant]
     Indication: PRODUCT USED FOR UNKNOWN INDICATION
     Route: 065
  19. ALBUMIN (HUMAN) [Concomitant]
     Indication: PRODUCT USED FOR UNKNOWN INDICATION
     Route: 065
  20. ASPIRIN [Concomitant]
     Indication: PRODUCT USED FOR UNKNOWN INDICATION
     Route: 065
  21. CEFAZOLIN [Concomitant]
     Indication: PRODUCT USED FOR UNKNOWN INDICATION
     Route: 065
  22. METHYLPREDNISOLONE SODIUM SUCCINATE [Concomitant]
     Indication: PRODUCT USED FOR UNKNOWN INDICATION
     Route: 065
  23. SODIUM BICARBONATE [Concomitant]
     Indication: PRODUCT USED FOR UNKNOWN INDICATION
     Route: 058
  24. FUROSEMIDE [Concomitant]
     Indication: PRODUCT USED FOR UNKNOWN INDICATION
     Route: 065
  25. CALCIUM CHLORIDE [Concomitant]
     Indication: PRODUCT USED FOR UNKNOWN INDICATION
     Route: 065
  26. CEFUROXIME SODIUM [Concomitant]
     Indication: PRODUCT USED FOR UNKNOWN INDICATION
     Route: 065
  27. EPINEPHRINE [Concomitant]
     Indication: PRODUCT USED FOR UNKNOWN INDICATION
     Route: 065
  28. MANNITOL [Concomitant]
     Indication: PRODUCT USED FOR UNKNOWN INDICATION
     Route: 065
  29. DEXTROSE [Concomitant]
     Indication: PRODUCT USED FOR UNKNOWN INDICATION
     Route: 065
  30. OMEPRAZOLE SODIUM [Concomitant]
     Indication: PRODUCT USED FOR UNKNOWN INDICATION
     Route: 065
  31. REGLAN [Concomitant]
     Indication: PRODUCT USED FOR UNKNOWN INDICATION
     Route: 065
  32. CAPTOPRIL [Concomitant]
     Indication: PRODUCT USED FOR UNKNOWN INDICATION
     Route: 065
  33. AMOXICILLIN [Concomitant]
     Indication: PRODUCT USED FOR UNKNOWN INDICATION
     Route: 065
  34. QVAR 40 [Concomitant]
     Indication: PRODUCT USED FOR UNKNOWN INDICATION
     Route: 055
  35. ALBUTEROL [Concomitant]
     Indication: PRODUCT USED FOR UNKNOWN INDICATION
     Route: 065
  36. ENFAMIL NATALINS RX [Concomitant]
     Indication: PRODUCT USED FOR UNKNOWN INDICATION
     Route: 065
  37. DOPAMINE HCL [Concomitant]
     Indication: PRODUCT USED FOR UNKNOWN INDICATION
     Route: 065
  38. BUPIVACAINE HCL [Concomitant]
     Indication: PRODUCT USED FOR UNKNOWN INDICATION
     Route: 065
  39. MAGNESIUM SULFATE [Concomitant]
     Indication: PRODUCT USED FOR UNKNOWN INDICATION
     Route: 065
  40. FENTANYL CITRATE [Concomitant]
     Indication: PRODUCT USED FOR UNKNOWN INDICATION
     Route: 065
  41. MIDAZOLAM HCL [Concomitant]
     Indication: PRODUCT USED FOR UNKNOWN INDICATION
     Route: 065
  42. LIDOCAINE [Concomitant]
     Indication: PRODUCT USED FOR UNKNOWN INDICATION
     Route: 065
  43. APROTININ [Concomitant]
     Indication: PRODUCT USED FOR UNKNOWN INDICATION
     Route: 065
  44. POTASSIUM CHLORIDE [Concomitant]
     Indication: PRODUCT USED FOR UNKNOWN INDICATION
     Route: 065
  45. BUMETANIDE [Concomitant]
     Indication: PRODUCT USED FOR UNKNOWN INDICATION
     Route: 065
  46. VECURONIUM BROMIDE [Concomitant]
     Indication: PRODUCT USED FOR UNKNOWN INDICATION
     Route: 065
  47. PHENYLEPHRINE HCL [Concomitant]
     Indication: PRODUCT USED FOR UNKNOWN INDICATION
     Route: 065
  48. INSULIN [Concomitant]
     Indication: PRODUCT USED FOR UNKNOWN INDICATION
     Route: 058
  49. MILRINONE [Concomitant]
     Indication: PRODUCT USED FOR UNKNOWN INDICATION
     Route: 042

REACTIONS (9)
  - ASTHENIA [None]
  - CEREBRAL PALSY [None]
  - CEREBROVASCULAR ACCIDENT [None]
  - CHOKING SENSATION [None]
  - DEVELOPMENTAL DELAY [None]
  - HEMIPLEGIA [None]
  - HYPOTENSION [None]
  - MUSCULOSKELETAL STIFFNESS [None]
  - VISUAL IMPAIRMENT [None]
